FAERS Safety Report 11976186 (Version 4)
Quarter: 2016Q3

REPORT INFORMATION
  Report Type: Spontaneous
  Country: US (occurrence: US)
  Receive Date: 20160129
  Receipt Date: 20160707
  Transmission Date: 20161109
  Serious: Yes (Hospitalization, Congenital Anomaly, Other)
  Sender: FDA-Public Use
  Company Number: US-APOTEX-2016AP005122

PATIENT
  Age: 0 Year
  Sex: Female
  Weight: 3.43 kg

DRUGS (4)
  1. PAROXETINE HYDROCHLORIDE. [Suspect]
     Active Substance: PAROXETINE HYDROCHLORIDE
     Indication: DEPRESSION
     Dosage: UNK
     Route: 064
  2. MARIJUANA [Concomitant]
     Active Substance: CANNABIS SATIVA SUBSP. INDICA TOP
     Indication: PRODUCT USED FOR UNKNOWN INDICATION
     Dosage: UNK
     Route: 065
  3. SELZENTRY [Suspect]
     Active Substance: MARAVIROC
     Indication: PROPHYLAXIS AGAINST HIV INFECTION
     Dosage: 300 MG/DAY
     Route: 064
     Dates: start: 20150216, end: 20150319
  4. EMTRIVA [Suspect]
     Active Substance: EMTRICITABINE
     Indication: PROPHYLAXIS AGAINST HIV INFECTION
     Dosage: 200 MG/DAY
     Route: 064
     Dates: start: 20150216, end: 20150319

REACTIONS (8)
  - Neonatal respiratory distress syndrome [Recovered/Resolved]
  - Apert^s syndrome [Not Recovered/Not Resolved]
  - Patent ductus arteriosus [Not Recovered/Not Resolved]
  - Foetal exposure during pregnancy [Unknown]
  - Congenital choroid plexus cyst [Not Recovered/Not Resolved]
  - Syndactyly [Not Recovered/Not Resolved]
  - Neonatal tachypnoea [Recovered/Resolved]
  - Atrial septal defect [Not Recovered/Not Resolved]

NARRATIVE: CASE EVENT DATE: 2015
